FAERS Safety Report 8132161-5 (Version None)
Quarter: 2012Q1

REPORT INFORMATION
  Report Type: 
  Country: None (occurrence: None)
  Receive Date: 20120213
  Receipt Date: 20120206
  Transmission Date: 20120608
  Serious: No
  Sender: FDA-Public Use
  Company Number: US-PFIZER INC-2012034365

PATIENT
  Sex: Female

DRUGS (4)
  1. LO/OVRAL-28 [Suspect]
     Indication: OFF LABEL USE
     Dosage: UNK
  2. PROZAC [Concomitant]
  3. WELLBUTRIN [Concomitant]
  4. LO/OVRAL-28 [Suspect]
     Indication: PREMENSTRUAL SYNDROME

REACTIONS (4)
  - IRRITABILITY [None]
  - ANXIETY [None]
  - ABDOMINAL DISTENSION [None]
  - CIRCUMSTANCE OR INFORMATION CAPABLE OF LEADING TO MEDICATION ERROR [None]
